FAERS Safety Report 25660911 (Version 1)
Quarter: 2025Q3

REPORT INFORMATION
  Report Type: Other
  Country: EU (occurrence: EU)
  Receive Date: 20250808
  Receipt Date: 20250808
  Transmission Date: 20251020
  Serious: Yes (Other)
  Sender: INCYTE
  Company Number: None

PATIENT
  Age: 51 Year

DRUGS (1)
  1. RUXOLITINIB [Suspect]
     Active Substance: RUXOLITINIB
     Indication: Myelofibrosis
     Dosage: 25 MG, Q12H (25 MG TWICE A DAY) (2 X DAAGS 25 MG)

REACTIONS (1)
  - Squamous cell carcinoma [Not Recovered/Not Resolved]
